FAERS Safety Report 10715927 (Version 1)
Quarter: 2015Q1

REPORT INFORMATION
  Report Type: Spontaneous
  Country: US (occurrence: None)
  Receive Date: 20150109
  Receipt Date: 20150109
  Transmission Date: 20150721
  Serious: Yes (Other)
  Sender: FDA-Public Use
  Company Number: 2014PROUSA03864

PATIENT
  Age: 86 Year
  Sex: Male
  Weight: 84.4 kg

DRUGS (19)
  1. PROVENGE [Suspect]
     Active Substance: SIPULEUCEL-T
     Indication: PROSTATE CANCER METASTATIC
     Dosage: 250 ML, SINGLE, INTRAVENOUS
     Route: 042
     Dates: start: 20140620, end: 20140620
  2. CALCIUM LACTATE [Concomitant]
     Active Substance: CALCIUM LACTATE
  3. PROSTATE PMG (PROSTATE GLAND EXTRACT) [Concomitant]
  4. OJIBWA (HERBAL EXTRACT NOS) [Concomitant]
  5. ONNEXIN (HERBAL EXTRACT NOS) [Concomitant]
  6. CATAPLEX E2-2 (HERBAL EXTRACT NOS) [Concomitant]
  7. SAM-E (ADEMETIONINE) [Concomitant]
  8. BROVANA (ARFORMOTEROL TARTRATE) [Concomitant]
  9. BYSTOLIC [Concomitant]
     Active Substance: NEBIVOLOL HYDROCHLORIDE
  10. ASPIRIN (ACETYLSALICYLIC ACID) [Concomitant]
     Active Substance: ASPIRIN
  11. COQ-10 (UBIDECARENONE) [Concomitant]
  12. METFORMIN HCL (METFORMIN HYDROCHLORIDE) [Concomitant]
  13. VITAMIN D (COLECALCIFEROL) [Concomitant]
  14. VITANOX (HERBAL EXTRACT NOS) [Concomitant]
  15. PENTOXIFYLLINE. [Concomitant]
     Active Substance: PENTOXIFYLLINE
  16. VITAMIN C [Concomitant]
     Active Substance: ASCORBIC ACID
  17. WHOLE IMMUNE (HERBAL EXTRACT NOS) [Concomitant]
  18. REMERON [Suspect]
     Active Substance: MIRTAZAPINE
     Indication: DECREASED APPETITE
  19. CYCLOSET (BROMOCRIPTINE MESILATE) [Concomitant]

REACTIONS (7)
  - Decreased appetite [None]
  - Muscular weakness [None]
  - Pain in extremity [None]
  - Asthenia [None]
  - Fatigue [None]
  - Spinal compression fracture [None]
  - Somnolence [None]

NARRATIVE: CASE EVENT DATE: 20140707
